FAERS Safety Report 13499397 (Version 2)
Quarter: 2018Q1

REPORT INFORMATION
  Report Type: Report from Study
  Country: US (occurrence: US)
  Receive Date: 20170501
  Receipt Date: 20180118
  Transmission Date: 20180508
  Serious: Yes (Death, Hospitalization)
  Sender: FDA-Public Use
  Company Number: US-ROCHE-1914598

PATIENT
  Age: 62 Year
  Sex: Female
  Weight: 53 kg

DRUGS (3)
  1. VISMODEGIB. [Suspect]
     Active Substance: VISMODEGIB
     Indication: NEOPLASM
     Dosage: MOST RECENT DOSE ON 25/JUL/2016?CYCLE: 28 DAYS
     Route: 048
     Dates: start: 20160622, end: 20160725
  2. VISMODEGIB. [Suspect]
     Active Substance: VISMODEGIB
     Indication: OVARIAN CANCER
  3. VINORELBINE [Concomitant]
     Active Substance: VINORELBINE\VINORELBINE TARTRATE
     Route: 065
     Dates: start: 201604, end: 201606

REACTIONS (2)
  - Back pain [Unknown]
  - Sepsis [Unknown]

NARRATIVE: CASE EVENT DATE: 20160724
